FAERS Safety Report 9842227 (Version 5)
Quarter: 2014Q1

REPORT INFORMATION
  Report Type: Report from Study
  Country: US (occurrence: US)
  Receive Date: 20140124
  Receipt Date: 20140312
  Transmission Date: 20141002
  Serious: Yes (Hospitalization)
  Sender: FDA-Public Use
  Company Number: US-GLAXOSMITHKLINE-A1058027A

PATIENT
  Age: 75 Year
  Sex: Male
  Weight: 74.6 kg

DRUGS (6)
  1. GSK2141795 [Suspect]
     Indication: MALIGNANT MELANOMA
     Route: 048
     Dates: start: 20131107
  2. TRAMETINIB [Suspect]
     Indication: MALIGNANT MELANOMA
     Route: 048
     Dates: start: 20131107
  3. LISINOPRIL [Concomitant]
     Indication: HYPERTENSION
     Dosage: 10MG PER DAY
     Route: 048
     Dates: start: 20110914
  4. METOPROLOL [Concomitant]
     Indication: HYPERTENSION
     Dosage: 25MG PER DAY
     Route: 048
  5. AVODART [Concomitant]
     Indication: BENIGN PROSTATIC HYPERPLASIA
     Dosage: .5MG PER DAY
     Route: 048
  6. TAMSULOSIN [Concomitant]
     Indication: BENIGN PROSTATIC HYPERPLASIA
     Dosage: .4MG PER DAY
     Route: 048

REACTIONS (1)
  - Pulmonary embolism [Recovering/Resolving]
